FAERS Safety Report 20304677 (Version 2)
Quarter: 2022Q1

REPORT INFORMATION
  Report Type: Spontaneous
  Country: US (occurrence: US)
  Receive Date: 20220106
  Receipt Date: 20220210
  Transmission Date: 20220424
  Serious: No
  Sender: FDA-Public Use
  Company Number: US-PFIZER INC-202101761081

PATIENT
  Age: 13 Year
  Sex: Male

DRUGS (1)
  1. GENOTROPIN [Suspect]
     Active Substance: SOMATROPIN
     Indication: Growth retardation
     Dosage: 1.2 MG, 1X/DAY (INJECTION ONCE A DAY AT NIGHT ROTATES FROM HIS THIGH TO BUTTOCKS AND ABDOMEN)

REACTIONS (5)
  - Drug dose omission by device [Unknown]
  - Device information output issue [Unknown]
  - Device use issue [Unknown]
  - Expired device used [Unknown]
  - Device dispensing error [Unknown]

NARRATIVE: CASE EVENT DATE: 20211208
